FAERS Safety Report 20723421 (Version 1)
Quarter: 2022Q2

REPORT INFORMATION
  Report Type: Spontaneous
  Country: US (occurrence: US)
  Receive Date: 20220419
  Receipt Date: 20220419
  Transmission Date: 20220721
  Serious: No
  Sender: FDA-Public Use
  Company Number: US-Encube-000159

PATIENT
  Age: 85 Year
  Sex: Male

DRUGS (1)
  1. KETOCONAZOLE [Suspect]
     Active Substance: KETOCONAZOLE
     Indication: Fungal infection
     Route: 065
     Dates: start: 20220401, end: 20220405

REACTIONS (4)
  - Skin discolouration [Not Recovered/Not Resolved]
  - Dry skin [Not Recovered/Not Resolved]
  - Infection [Not Recovered/Not Resolved]
  - Pruritus [Not Recovered/Not Resolved]
